FAERS Safety Report 16531809 (Version 1)
Quarter: 2019Q3

REPORT INFORMATION
  Report Type: Spontaneous
  Country: US (occurrence: US)
  Receive Date: 20190705
  Receipt Date: 20190705
  Transmission Date: 20191004
  Serious: No
  Sender: FDA-Public Use
  Company Number: US-009507513-1906USA002955

PATIENT
  Age: 73 Year
  Sex: Male
  Weight: 126.98 kg

DRUGS (3)
  1. BRIDION [Suspect]
     Active Substance: SUGAMMADEX
     Indication: NEUROMUSCULAR BLOCKADE REVERSAL
     Dosage: 500 MILLIGRAM
     Route: 042
     Dates: start: 20190529
  2. BRIDION [Suspect]
     Active Substance: SUGAMMADEX
     Dosage: 500 MILLIGRAM
     Dates: start: 20190529
  3. ROCURONIUM BROMIDE. [Concomitant]
     Active Substance: ROCURONIUM BROMIDE

REACTIONS (2)
  - Drug ineffective [Recovered/Resolved]
  - Product use issue [Unknown]

NARRATIVE: CASE EVENT DATE: 20190529
